FAERS Safety Report 18141737 (Version 1)
Quarter: 2020Q3

REPORT INFORMATION
  Report Type: Spontaneous
  Country: US (occurrence: US)
  Receive Date: 20200812
  Receipt Date: 20200812
  Transmission Date: 20201103
  Serious: Yes (Other)
  Sender: FDA-Public Use
  Company Number: US-JNJFOC-20200803386

PATIENT
  Sex: Female
  Weight: 124.4 kg

DRUGS (18)
  1. HYDROMORPHONE [Concomitant]
     Active Substance: HYDROMORPHONE
  2. LOSARTAN. [Concomitant]
     Active Substance: LOSARTAN
  3. TRULICITY [Concomitant]
     Active Substance: DULAGLUTIDE
  4. VITAMIN C [Concomitant]
     Active Substance: ASCORBIC ACID
  5. FUROSEMIDE. [Concomitant]
     Active Substance: FUROSEMIDE
  6. HYDROXYZINE [Concomitant]
     Active Substance: HYDROXYZINE HYDROCHLORIDE
  7. ATORVASTATIN [Concomitant]
     Active Substance: ATORVASTATIN
  8. DOXEPIN [Concomitant]
     Active Substance: DOXEPIN
  9. METFORMIN [Concomitant]
     Active Substance: METFORMIN HYDROCHLORIDE
  10. SIMPONI ARIA [Suspect]
     Active Substance: GOLIMUMAB
     Indication: PSORIATIC ARTHROPATHY
     Dosage: VIAL OF 12.25 MG/ML
     Route: 042
     Dates: start: 201908
  11. CLONAZEPAM. [Concomitant]
     Active Substance: CLONAZEPAM
  12. DARIFENACIN. [Concomitant]
     Active Substance: DARIFENACIN
  13. FAMOTIDINE. [Concomitant]
     Active Substance: FAMOTIDINE
  14. GABAPENTIN. [Concomitant]
     Active Substance: GABAPENTIN
  15. METHOTREXATE. [Concomitant]
     Active Substance: METHOTREXATE
  16. ESOMEPRAZOLE. [Concomitant]
     Active Substance: ESOMEPRAZOLE MAGNESIUM
  17. FOLIC ACID. [Concomitant]
     Active Substance: FOLIC ACID
  18. MAGNESIUM                          /00123201/ [Concomitant]
     Active Substance: MAGNESIUM HYDROXIDE

REACTIONS (3)
  - Peripheral swelling [Not Recovered/Not Resolved]
  - Pneumonia [Recovered/Resolved]
  - Arthralgia [Not Recovered/Not Resolved]

NARRATIVE: CASE EVENT DATE: 202001
